FAERS Safety Report 15582440 (Version 1)
Quarter: 2018Q4

REPORT INFORMATION
  Report Type: Spontaneous
  Country: US (occurrence: US)
  Receive Date: 20181102
  Receipt Date: 20181102
  Transmission Date: 20190205
  Serious: No
  Sender: FDA-Public Use
  Company Number: US-TEVA-2018-US-969411

PATIENT
  Sex: Female

DRUGS (1)
  1. ACTAVIS MICONAZOLE - 3 COMBO,200 MG / 2 % [Suspect]
     Active Substance: MICONAZOLE
     Dosage: 200 MG / 2 %

REACTIONS (1)
  - Drug ineffective [Unknown]
